FAERS Safety Report 19073436 (Version 1)
Quarter: 2021Q1

REPORT INFORMATION
  Report Type: Spontaneous
  Country: US (occurrence: US)
  Receive Date: 20210330
  Receipt Date: 20210330
  Transmission Date: 20210420
  Serious: No
  Sender: FDA-Public Use
  Company Number: US-SA-2021SA104656

PATIENT
  Sex: Female

DRUGS (1)
  1. THYROGEN [Suspect]
     Active Substance: THYROTROPIN ALFA
     Indication: SCAN THYROID GLAND
     Dosage: DRUG STRUCTURE DOSAGE : 2 VIALS DRUG INTERVAL DOSAGE : UNKNOWN
     Route: 042

REACTIONS (1)
  - Lymphadenopathy [Unknown]
